FAERS Safety Report 5443173-4 (Version None)
Quarter: 2007Q3

REPORT INFORMATION
  Report Type: 
  Country: None (occurrence: None)
  Receive Date: 20070730
  Receipt Date: 20070116
  Transmission Date: 20080115
  Serious: Yes (Hospitalization)
  Sender: FDA-Public Use
  Company Number: 234078

PATIENT
  Age: 49 Year
  Sex: Female
  Weight: 74.8 kg

DRUGS (10)
  1. RITUXAN [Suspect]
     Indication: RHEUMATOID ARTHRITIS
     Dates: start: 20061012
  2. HYDROCORTISONE [Concomitant]
  3. OMNICEF [Concomitant]
  4. PREDNISONE TAB [Concomitant]
  5. ARAVA [Concomitant]
  6. FOLIC ACID [Concomitant]
  7. PROTONIX [Concomitant]
  8. ASPIRIN [Concomitant]
  9. CHROMAGEN (ASCORBIC ACID, CYANOCOBALAMIN, FERROUS FUMARATE, INTRINSIC [Concomitant]
  10. CELEBREX [Concomitant]

REACTIONS (1)
  - PNEUMONIA [None]
